FAERS Safety Report 7571377-3 (Version None)
Quarter: 2011Q2

REPORT INFORMATION
  Report Type: 
  Country: None (occurrence: None)
  Receive Date: 20110623
  Receipt Date: 20110623
  Transmission Date: 20111010
  Serious: Yes (Hospitalization, Disabling)
  Sender: FDA-Public Use
  Company Number: None

PATIENT
  Age: 86 Year
  Sex: Female
  Weight: 59 kg

DRUGS (16)
  1. MOTRIN [Concomitant]
  2. AMBIEN [Concomitant]
  3. MULTI-VITAMIN [Concomitant]
  4. PERCOCET [Concomitant]
  5. DIPHENHYDRAMINE HCL [Suspect]
     Dosage: DIPHENHYDRAMINE 50 MG IV
     Route: 042
     Dates: start: 20110503, end: 20110503
  6. LYRICA [Concomitant]
  7. METOPROLOL SUCCINATE [Concomitant]
  8. KETOROLAC TROMETHAMINE [Concomitant]
  9. FAMOTIDINE [Concomitant]
  10. FOSAMAX [Concomitant]
  11. MORPHINE [Concomitant]
  12. PROMETHAZINE [Suspect]
     Indication: NAUSEA
     Dosage: PROMETHAZINE 12.5 MG IV
     Route: 042
     Dates: start: 20110503, end: 20110503
  13. NALOXONE [Concomitant]
  14. LACTATED RINGER'S [Concomitant]
  15. COLACE [Concomitant]
  16. SIMETHICONE [Concomitant]

REACTIONS (3)
  - DYSARTHRIA [None]
  - DISORIENTATION [None]
  - SEDATION [None]
